FAERS Safety Report 9227218 (Version 1)
Quarter: 2013Q1

REPORT INFORMATION
  Report Type: Spontaneous
  Country: US (occurrence: None)
  Receive Date: 20120914
  Receipt Date: 20120914
  Transmission Date: 20140127
  Serious: No
  Sender: FDA-Public Use
  Company Number: JPI-P-019460

PATIENT
  Age: 71 Year
  Sex: Female

DRUGS (4)
  1. XYREM [Suspect]
     Indication: INSOMNIA
     Route: 048
     Dates: start: 20040611
  2. HYDROCODONE BITARTRATE AND ACETAMINOPHEN [Concomitant]
  3. SERTRALINE HYDROCHLORIDE [Concomitant]
  4. LISINOPRIL [Concomitant]

REACTIONS (3)
  - Arthritis [None]
  - Arthralgia [None]
  - Abasia [None]
